FAERS Safety Report 8200817-1 (Version None)
Quarter: 2012Q1

REPORT INFORMATION
  Report Type: 
  Country: None (occurrence: None)
  Receive Date: 20120223
  Receipt Date: 20120217
  Transmission Date: 20120608
  Serious: Yes (Life-Threatening, Hospitalization)
  Sender: FDA-Public Use
  Company Number: THYM-1000984

PATIENT
  Age: 20 Year
  Sex: Female
  Weight: 85.7 kg

DRUGS (9)
  1. THYMOGLOBULIN [Suspect]
  2. NORETHINDRONE [Concomitant]
  3. NEOMYCIN (NEOMYCIN) [Concomitant]
  4. ACYCLOVIR [Concomitant]
  5. LANSOPRAZOLE [Concomitant]
  6. THYMOGLOBULIN [Suspect]
     Indication: APLASTIC ANAEMIA
     Dosage: 215 MG, QD, INTRAVENOUS
     Route: 042
     Dates: start: 20090128, end: 20090201
  7. CYCLOSPORINE [Concomitant]
  8. THYMOGLOBULIN [Suspect]
  9. FLUCONAZOLE [Concomitant]

REACTIONS (25)
  - ISCHAEMIC HEPATITIS [None]
  - ARTHRALGIA [None]
  - RENAL FAILURE ACUTE [None]
  - FEBRILE NEUTROPENIA [None]
  - FALL [None]
  - PANCYTOPENIA [None]
  - HEMIPLEGIA [None]
  - JOINT SWELLING [None]
  - HYPOTENSION [None]
  - GENERAL PHYSICAL HEALTH DETERIORATION [None]
  - ACIDOSIS [None]
  - MYOPATHY [None]
  - CATHETER SITE HAEMATOMA [None]
  - KLEBSIELLA TEST POSITIVE [None]
  - BLOOD GLUCOSE INCREASED [None]
  - VENTRICULAR DYSFUNCTION [None]
  - HAEMODIALYSIS [None]
  - PUPIL FIXED [None]
  - SERUM SICKNESS [None]
  - NEUTROPENIC SEPSIS [None]
  - PAIN [None]
  - RASH GENERALISED [None]
  - NECK PAIN [None]
  - PULMONARY HYPERTENSION [None]
  - CONFUSIONAL STATE [None]
